FAERS Safety Report 4697620-6 (Version None)
Quarter: 2005Q2

REPORT INFORMATION
  Report Type: 
  Country: None (occurrence: None)
  Receive Date: 20050608
  Receipt Date: 20041206
  Transmission Date: 20051028
  Serious: No
  Sender: FDA-Public Use
  Company Number: 385636

PATIENT
  Age: 32 Year
  Sex: Female
  Weight: 90.7 kg

DRUGS (1)
  1. ACCUTANE [Suspect]
     Indication: ACNE
     Dosage: ORAL
     Route: 048
     Dates: start: 19991015, end: 19991015

REACTIONS (1)
  - DEPRESSION [None]
